FAERS Safety Report 17651562 (Version 1)
Quarter: 2020Q2

REPORT INFORMATION
  Report Type: Spontaneous
  Country: US (occurrence: US)
  Receive Date: 20200409
  Receipt Date: 20200409
  Transmission Date: 20200713
  Serious: No
  Sender: FDA-Public Use
  Company Number: None

PATIENT
  Age: 20 Year
  Sex: Female
  Weight: 62 kg

DRUGS (3)
  1. FAMOTIDINE. [Concomitant]
     Active Substance: FAMOTIDINE
  2. PEGASPARGASE [Suspect]
     Active Substance: PEGASPARGASE
  3. DIPHENHYDRAMINE. [Concomitant]
     Active Substance: DIPHENHYDRAMINE

REACTIONS (3)
  - Unresponsive to stimuli [None]
  - Cardio-respiratory arrest [None]
  - Vomiting [None]

NARRATIVE: CASE EVENT DATE: 20200325
